FAERS Safety Report 5281585-2 (Version None)
Quarter: 2007Q1

REPORT INFORMATION
  Report Type: 
  Country: None (occurrence: None)
  Receive Date: 20061222
  Receipt Date: 20060601
  Transmission Date: 20070707
  Serious: Yes (Hospitalization)
  Sender: FDA-Public Use
  Company Number: 2006-0009691

PATIENT
  Age: 54 Year
  Sex: Male
  Weight: 56.246 kg

DRUGS (4)
  1. VIREAD [Suspect]
     Indication: HIV INFECTION
     Dates: start: 20030601, end: 20060518
  2. EPIVIR [Concomitant]
  3. DIDANOSINE [Concomitant]
  4. VIRAMUNE [Concomitant]

REACTIONS (1)
  - RENAL FAILURE ACUTE [None]
